FAERS Safety Report 16408081 (Version 1)
Quarter: 2019Q2

REPORT INFORMATION
  Report Type: Spontaneous
  Country: JP (occurrence: JP)
  Receive Date: 20190610
  Receipt Date: 20190610
  Transmission Date: 20190711
  Serious: Yes (Other)
  Sender: FDA-Public Use
  Company Number: JP-AMGEN-JPNSP2019091654

PATIENT
  Age: 61 Year
  Sex: Female

DRUGS (24)
  1. G-LASTA [Suspect]
     Active Substance: PEGFILGRASTIM
     Dosage: 3.6 MILLIGRAM
     Route: 058
     Dates: start: 20180111, end: 20180111
  2. DOCETAXEL. [Suspect]
     Active Substance: DOCETAXEL
     Indication: BREAST CANCER
     Dosage: 120 MILLIGRAM
     Route: 041
     Dates: start: 20171122, end: 20171122
  3. DOCETAXEL. [Suspect]
     Active Substance: DOCETAXEL
     Dosage: 120 MILLIGRAM
     Route: 041
     Dates: start: 20180109, end: 20180109
  4. LUCONAC [Concomitant]
     Indication: PRODUCT USED FOR UNKNOWN INDICATION
     Dosage: UNK
     Route: 061
     Dates: start: 20171101
  5. G-LASTA [Suspect]
     Active Substance: PEGFILGRASTIM
     Indication: COLONY STIMULATING FACTOR THERAPY
     Dosage: 3.6 MILLIGRAM
     Route: 058
     Dates: start: 20171124, end: 20171124
  6. DECADRON [Concomitant]
     Active Substance: DEXAMETHASONE
     Dosage: 8 MILLIGRAM
     Route: 048
     Dates: start: 20180110, end: 20180111
  7. DIACORT [Concomitant]
     Active Substance: DIFLORASONE DIACETATE
     Indication: PRODUCT USED FOR UNKNOWN INDICATION
     Dosage: UNK
     Route: 061
     Dates: start: 20171101
  8. G-LASTA [Suspect]
     Active Substance: PEGFILGRASTIM
     Dosage: 3.6 MILLIGRAM
     Route: 058
     Dates: start: 20171220, end: 20171220
  9. ENDOXAN [CYCLOPHOSPHAMIDE] [Suspect]
     Active Substance: CYCLOPHOSPHAMIDE
     Dosage: 1000 MILLIGRAM
     Route: 041
     Dates: start: 20171218, end: 20171218
  10. SODIUM RABEPRAZOLE [Concomitant]
     Active Substance: RABEPRAZOLE SODIUM
     Dosage: 10 MILLIGRAM
     Route: 048
     Dates: start: 20180109, end: 20180111
  11. DOCETAXEL. [Suspect]
     Active Substance: DOCETAXEL
     Dosage: 120 MILLIGRAM
     Route: 041
     Dates: start: 20171218, end: 20171218
  12. DECADRON [Concomitant]
     Active Substance: DEXAMETHASONE
     Indication: PRODUCT USED FOR UNKNOWN INDICATION
     Dosage: 8 MILLIGRAM
     Route: 048
     Dates: start: 20171123, end: 20171124
  13. SODIUM RABEPRAZOLE [Concomitant]
     Active Substance: RABEPRAZOLE SODIUM
     Dosage: 10 MILLIGRAM
     Route: 048
     Dates: start: 20171218, end: 20171220
  14. CELECOX [Concomitant]
     Active Substance: CELECOXIB
     Indication: PRODUCT USED FOR UNKNOWN INDICATION
     Dosage: 100 MILLIGRAM, BID
     Route: 048
     Dates: start: 20171124
  15. DECADRON [Concomitant]
     Active Substance: DEXAMETHASONE
     Dosage: 8 MILLIGRAM
     Route: 048
     Dates: start: 20180130, end: 20180131
  16. ENDOXAN [CYCLOPHOSPHAMIDE] [Suspect]
     Active Substance: CYCLOPHOSPHAMIDE
     Dosage: 1000 MILLIGRAM
     Route: 041
     Dates: start: 20180109, end: 20180109
  17. DOCETAXEL. [Suspect]
     Active Substance: DOCETAXEL
     Dosage: 120 MILLIGRAM
     Route: 041
     Dates: start: 20180129, end: 20180129
  18. SODIUM RABEPRAZOLE [Concomitant]
     Active Substance: RABEPRAZOLE SODIUM
     Indication: PRODUCT USED FOR UNKNOWN INDICATION
     Dosage: 10 MILLIGRAM
     Route: 048
     Dates: start: 20171122, end: 20171124
  19. SODIUM RABEPRAZOLE [Concomitant]
     Active Substance: RABEPRAZOLE SODIUM
     Dosage: 10 MILLIGRAM
     Route: 048
     Dates: start: 20180129, end: 20180131
  20. ENDOXAN [CYCLOPHOSPHAMIDE] [Suspect]
     Active Substance: CYCLOPHOSPHAMIDE
     Indication: BREAST CANCER
     Dosage: 1000 MILLIGRAM
     Route: 041
     Dates: start: 20171122, end: 20171122
  21. ENDOXAN [CYCLOPHOSPHAMIDE] [Suspect]
     Active Substance: CYCLOPHOSPHAMIDE
     Dosage: 1000 MILLIGRAM
     Route: 041
     Dates: start: 20180129, end: 20180129
  22. ALOXI [Concomitant]
     Active Substance: PALONOSETRON HYDROCHLORIDE
     Indication: PRODUCT USED FOR UNKNOWN INDICATION
     Dosage: 0.75 MILLIGRAM
     Route: 065
     Dates: start: 20171122, end: 20180129
  23. DEXART [Concomitant]
     Active Substance: DEXAMETHASONE SODIUM PHOSPHATE
     Indication: PRODUCT USED FOR UNKNOWN INDICATION
     Dosage: 9.9 MILLIGRAM
     Route: 065
     Dates: start: 20171122, end: 20180129
  24. DECADRON [Concomitant]
     Active Substance: DEXAMETHASONE
     Dosage: 8 MILLIGRAM
     Route: 048
     Dates: start: 20171219, end: 20171220

REACTIONS (1)
  - Erythema multiforme [Recovered/Resolved]

NARRATIVE: CASE EVENT DATE: 20180118
